FAERS Safety Report 21836272 (Version 1)
Quarter: 2023Q1

REPORT INFORMATION
  Report Type: Spontaneous
  Country: US (occurrence: US)
  Receive Date: 20230109
  Receipt Date: 20230109
  Transmission Date: 20230418
  Serious: Yes (Hospitalization)
  Sender: FDA-Public Use
  Company Number: US-SA-SAC20230106000891

PATIENT
  Age: 87 Year
  Sex: Female

DRUGS (15)
  1. DUPIXENT [Suspect]
     Active Substance: DUPILUMAB
     Indication: Dyspnoea
     Dosage: 300 MG QOW
     Route: 065
     Dates: start: 20210226
  2. VITAMINS NOS [Concomitant]
     Active Substance: VITAMINS
  3. CLARITIN [Concomitant]
     Active Substance: LORATADINE
  4. CALCIUM\CHOLECALCIFEROL [Concomitant]
     Active Substance: CALCIUM\CHOLECALCIFEROL
  5. SYNTHROID [Concomitant]
     Active Substance: LEVOTHYROXINE SODIUM
  6. DIOVAN [Concomitant]
     Active Substance: VALSARTAN
  7. NORVASC [Concomitant]
     Active Substance: AMLODIPINE BESYLATE
  8. FUROSEMIDE [Concomitant]
     Active Substance: FUROSEMIDE
  9. FLUTICASONE PROPIONATE [Concomitant]
     Active Substance: FLUTICASONE PROPIONATE
  10. ASPIRIN [Concomitant]
     Active Substance: ASPIRIN
  11. FISH OIL [Concomitant]
     Active Substance: FISH OIL
  12. PLAVIX [Concomitant]
     Active Substance: CLOPIDOGREL BISULFATE
  13. ADVAIR HFA [Concomitant]
     Active Substance: FLUTICASONE PROPIONATE\SALMETEROL XINAFOATE
  14. REFRESH [POLYVINYL ALCOHOL;POVIDONE] [Concomitant]
  15. OSTEO BI-FLEX [ASCORBIC ACID;BOSWELLIA SERRATA RESIN;CHONDROITIN SULFA [Concomitant]

REACTIONS (2)
  - Lung disorder [Unknown]
  - Product use in unapproved indication [Unknown]

NARRATIVE: CASE EVENT DATE: 20210226
